FAERS Safety Report 8447644-8 (Version None)
Quarter: 2012Q2

REPORT INFORMATION
  Report Type: 
  Country: None (occurrence: None)
  Receive Date: 20120619
  Receipt Date: 20120611
  Transmission Date: 20120825
  Serious: Yes (Other)
  Sender: FDA-Public Use
  Company Number: US-BRISTOL-MYERS SQUIBB COMPANY-16499907

PATIENT
  Age: 79 Year
  Sex: Female

DRUGS (1)
  1. ORENCIA [Suspect]
     Dosage: ONE TIME,INTERRUPTED FOR 3 MONTHS
     Dates: start: 20120320

REACTIONS (3)
  - BLOOD DISORDER [None]
  - DYSPNOEA [None]
  - ABASIA [None]
